FAERS Safety Report 16103275 (Version 2)
Quarter: 2019Q2

REPORT INFORMATION
  Report Type: Spontaneous
  Country: PL (occurrence: PL)
  Receive Date: 20190322
  Receipt Date: 20190412
  Transmission Date: 20190711
  Serious: Yes (Other)
  Sender: FDA-Public Use
  Company Number: PL-AUROBINDO-AUR-APL-2019-014292

PATIENT

DRUGS (13)
  1. FINASTERIDE. [Suspect]
     Active Substance: FINASTERIDE
     Indication: NOCTURIA
     Dosage: UNK UNK, UNKNOWN FREQ.
     Route: 065
  2. TAMSULOSIN [Suspect]
     Active Substance: TAMSULOSIN
     Indication: NOCTURIA
  3. TAMSULOSIN [Suspect]
     Active Substance: TAMSULOSIN
     Indication: BENIGN PROSTATIC HYPERPLASIA
  4. SOLIFENACIN [Suspect]
     Active Substance: SOLIFENACIN
     Indication: PRODUCT USED FOR UNKNOWN INDICATION
     Dosage: UNK UNK, UNKNOWN FREQ.
     Route: 065
  5. PRESTARIUM [Concomitant]
     Active Substance: PERINDOPRIL
     Indication: HYPERTENSION
     Dosage: UNK UNK, UNKNOWN FREQ.
     Route: 065
  6. FINASTERIDE. [Suspect]
     Active Substance: FINASTERIDE
     Indication: POLYURIA
  7. TAMSULOSIN [Suspect]
     Active Substance: TAMSULOSIN
     Indication: POLYURIA
     Dosage: UNK UNK, UNKNOWN FREQ.
     Route: 065
  8. FINASTERIDE. [Suspect]
     Active Substance: FINASTERIDE
     Indication: BENIGN PROSTATIC HYPERPLASIA
  9. TAMSULOSIN [Suspect]
     Active Substance: TAMSULOSIN
     Indication: MICTURITION URGENCY
  10. TIALORID [Concomitant]
     Indication: HYPERTENSION
     Dosage: UNK UNK, UNKNOWN FREQ.
     Route: 065
  11. FINASTERIDE. [Suspect]
     Active Substance: FINASTERIDE
     Indication: LOWER URINARY TRACT SYMPTOMS
  12. TAMSULOSIN [Suspect]
     Active Substance: TAMSULOSIN
     Indication: LOWER URINARY TRACT SYMPTOMS
  13. FINASTERIDE. [Suspect]
     Active Substance: FINASTERIDE
     Indication: MICTURITION URGENCY

REACTIONS (3)
  - Bladder cancer [Unknown]
  - Obesity [Unknown]
  - Drug ineffective [Unknown]
